FAERS Safety Report 6169003-3 (Version None)
Quarter: 2009Q2

REPORT INFORMATION
  Report Type: 
  Country: None (occurrence: None)
  Receive Date: 20090427
  Receipt Date: 20090427
  Transmission Date: 20091009
  Serious: Yes (Disabling)
  Sender: FDA-Public Use
  Company Number: CA-PFIZER INC-2009173624

PATIENT

DRUGS (9)
  1. LYRICA [Suspect]
     Indication: NEURALGIA
     Dosage: 150 MG, 2X/DAY
     Route: 048
     Dates: start: 20071206, end: 20081028
  2. CYMBALTA [Concomitant]
     Indication: DEPRESSION
     Dosage: 60 TO 80 MG
     Route: 048
     Dates: start: 20080328
  3. CYMBALTA [Concomitant]
     Indication: PAIN
  4. MOBICOX [Concomitant]
     Indication: INFLAMMATION
     Dosage: 15 MG, 1X/DAY
     Route: 048
     Dates: start: 20071207
  5. WELLBUTRIN [Concomitant]
     Dosage: 100 MG, 1X/DAY
     Route: 048
     Dates: start: 20080108
  6. CLONAZEPAM [Concomitant]
     Indication: ANXIETY
     Dosage: 0.5 MG, 1X/DAY
     Route: 048
     Dates: start: 20080328
  7. CLONAZEPAM [Concomitant]
     Indication: INSOMNIA
  8. HYDROMORPHONE HCL [Concomitant]
     Indication: PAIN
     Dosage: 6 MG, 2X/DAY
     Route: 048
     Dates: start: 20081127
  9. SYNTHROID [Concomitant]
     Indication: HYPOTHYROIDISM
     Dosage: 0.05 MG, 1X/DAY
     Route: 048

REACTIONS (2)
  - INTERVERTEBRAL DISC DISORDER [None]
  - TENDONITIS [None]
